FAERS Safety Report 5418312-1 (Version None)
Quarter: 2007Q3

REPORT INFORMATION
  Report Type: 
  Country: None (occurrence: None)
  Receive Date: 20070817
  Receipt Date: 20070815
  Transmission Date: 20080115
  Serious: Yes (Hospitalization, Disabling)
  Sender: FDA-Public Use
  Company Number: DK-BRISTOL-MYERS SQUIBB COMPANY-13869656

PATIENT
  Age: 57 Year
  Sex: Male

DRUGS (1)
  1. TECHNETIUM TC 99M SESTAMIBI [Suspect]
     Dosage: RECEIVED 09-FEB-2005 AND 01-MAR-2005
     Dates: start: 20050101

REACTIONS (3)
  - GAIT DISTURBANCE [None]
  - PAIN [None]
  - SEPSIS [None]
